FAERS Safety Report 16490093 (Version 3)
Quarter: 2019Q3

REPORT INFORMATION
  Report Type: Spontaneous
  Country: US (occurrence: US)
  Receive Date: 20190628
  Receipt Date: 20190718
  Transmission Date: 20191004
  Serious: Yes (Other)
  Sender: FDA-Public Use
  Company Number: US-BAYER-2019-118668

PATIENT
  Age: 37 Year
  Sex: Female

DRUGS (2)
  1. MIRENA [Suspect]
     Active Substance: LEVONORGESTREL
  2. MIRENA [Suspect]
     Active Substance: LEVONORGESTREL
     Dosage: 20 MCG/24HR, CONT
     Route: 015
     Dates: start: 201409, end: 20190425

REACTIONS (8)
  - Embedded device [None]
  - Complication of device removal [None]
  - Device difficult to use [None]
  - Device use error [None]
  - Device issue [None]
  - Feeling abnormal [None]
  - Procedural pain [Not Recovered/Not Resolved]
  - Medical device monitoring error [None]

NARRATIVE: CASE EVENT DATE: 2019
